FAERS Safety Report 4474132-6 (Version None)
Quarter: 2004Q4

REPORT INFORMATION
  Report Type: 
  Country: None (occurrence: None)
  Receive Date: 20041013
  Receipt Date: 20041013
  Transmission Date: 20050328
  Serious: Yes (Hospitalization)
  Sender: FDA-Public Use
  Company Number: None

PATIENT
  Age: 57 Year
  Sex: Female
  Weight: 66.2252 kg

DRUGS (2)
  1. CARBOPLATIN [Suspect]
  2. TAXOL [Suspect]

REACTIONS (3)
  - CONSTIPATION [None]
  - SMALL INTESTINAL OBSTRUCTION [None]
  - URINARY TRACT INFECTION [None]
